FAERS Safety Report 10265000 (Version 1)
Quarter: 2014Q2

REPORT INFORMATION
  Report Type: Spontaneous
  Country: US (occurrence: US)
  Receive Date: 20140627
  Receipt Date: 20140627
  Transmission Date: 20141212
  Serious: No
  Sender: FDA-Public Use
  Company Number: US-PFIZER INC-2014171936

PATIENT
  Age: 56 Year
  Sex: Female
  Weight: 50 kg

DRUGS (3)
  1. NORVASC [Suspect]
     Indication: HYPERTENSION
     Dosage: 2.5 MG, 1X/DAY
     Route: 048
     Dates: start: 20140606
  2. CALTRATE [Suspect]
     Dosage: UNK
  3. CYANOCOBALAMIN [Suspect]
     Indication: VITAMIN SUPPLEMENTATION
     Dosage: 1000 UG, 1X/DAY
     Route: 048
     Dates: start: 20140619, end: 20140620

REACTIONS (1)
  - Abdominal discomfort [Not Recovered/Not Resolved]
